FAERS Safety Report 5916285-6 (Version None)
Quarter: 2008Q4

REPORT INFORMATION
  Report Type: 
  Country: None (occurrence: None)
  Receive Date: 20081013
  Receipt Date: 20081006
  Transmission Date: 20090506
  Serious: Yes (Hospitalization)
  Sender: FDA-Public Use
  Company Number: PHHY2008FR23887

PATIENT
  Age: 34 Year
  Sex: Female

DRUGS (3)
  1. LAMISIL [Suspect]
     Indication: INTERTRIGO
     Dosage: 250 MG/DAY
     Route: 048
     Dates: end: 20080820
  2. ANAFRANIL [Concomitant]
     Dosage: UNK
     Route: 048
  3. NIVAQUINE [Concomitant]
     Dosage: UNK
     Route: 048

REACTIONS (3)
  - CONDITION AGGRAVATED [None]
  - RASH ERYTHEMATOUS [None]
  - SJOGREN'S SYNDROME [None]
